FAERS Safety Report 9318253 (Version 1)
Quarter: 2013Q2

REPORT INFORMATION
  Report Type: Spontaneous
  Country: US (occurrence: US)
  Receive Date: 20130530
  Receipt Date: 20130530
  Transmission Date: 20140414
  Serious: No
  Sender: FDA-Public Use
  Company Number: US-NOVEN-13US006371

PATIENT
  Age: 6 Year
  Sex: Male

DRUGS (4)
  1. DAYTRANA [Suspect]
     Indication: ATTENTION DEFICIT/HYPERACTIVITY DISORDER
     Dosage: 1/2 PATCH
     Route: 062
     Dates: start: 201201
  2. KAPVAY [Concomitant]
     Indication: ATTENTION DEFICIT/HYPERACTIVITY DISORDER
     Dosage: 0.1 MG, 1/WEEK
     Dates: start: 20130131, end: 20130207
  3. KAPVAY [Concomitant]
     Dosage: 1/4 0.1 MG, MORNING
     Route: 048
  4. KAPVAY [Concomitant]
     Dosage: 0.1 MG, MORNING
     Route: 048

REACTIONS (7)
  - Abnormal behaviour [Unknown]
  - Impulsive behaviour [Unknown]
  - Sleep talking [Not Recovered/Not Resolved]
  - Irritability [Not Recovered/Not Resolved]
  - Tic [Unknown]
  - Somnolence [Not Recovered/Not Resolved]
  - Anger [Not Recovered/Not Resolved]
